FAERS Safety Report 5523400-5 (Version None)
Quarter: 2007Q4

REPORT INFORMATION
  Report Type: 
  Country: None (occurrence: None)
  Receive Date: 20071121
  Receipt Date: 20071115
  Transmission Date: 20080405
  Serious: Yes (Hospitalization)
  Sender: FDA-Public Use
  Company Number: CZ-BRISTOL-MYERS SQUIBB COMPANY-13989181

PATIENT
  Age: 39 Year
  Sex: Female
  Weight: 54 kg

DRUGS (7)
  1. LOMUSTINE [Suspect]
     Dosage: ONCE
     Dates: start: 20070719, end: 20070719
  2. KEPPRA [Concomitant]
  3. TEGRETOL [Concomitant]
     Dosage: 1 AND 1/2 TABLETS PER DAY
  4. POTASSIUM CHLORIDE [Concomitant]
  5. RANITIDINE HCL [Concomitant]
  6. CITALOPRAM [Concomitant]
  7. DEXAMETHASONE [Concomitant]

REACTIONS (1)
  - EPILEPSY [None]
